FAERS Safety Report 7425576-1 (Version None)
Quarter: 2011Q2

REPORT INFORMATION
  Report Type: 
  Country: None (occurrence: None)
  Receive Date: 20110420
  Receipt Date: 20100809
  Transmission Date: 20111010
  Serious: No
  Sender: FDA-Public Use
  Company Number: US-ASTRAZENECA-2010SE37226

PATIENT
  Sex: Male
  Weight: 88.5 kg

DRUGS (1)
  1. CASODEX [Suspect]
     Indication: PROSTATE CANCER
     Route: 048
     Dates: start: 20090301, end: 20090401

REACTIONS (3)
  - NIPPLE PAIN [None]
  - PROSTATIC SPECIFIC ANTIGEN DECREASED [None]
  - ERECTILE DYSFUNCTION [None]
